FAERS Safety Report 10646034 (Version 1)
Quarter: 2014Q4

REPORT INFORMATION
  Report Type: Spontaneous
  Country: PH (occurrence: PH)
  Receive Date: 20141211
  Receipt Date: 20141211
  Transmission Date: 20150529
  Serious: Yes (Death)
  Sender: FDA-Public Use
  Company Number: PH-009507513-1412PHL005366

PATIENT
  Age: 60 Year
  Sex: Female

DRUGS (1)
  1. JANUVIA [Suspect]
     Active Substance: SITAGLIPTIN PHOSPHATE
     Indication: DIABETES MELLITUS
     Dosage: 1 DF, QD
     Route: 048
     Dates: start: 2010

REACTIONS (3)
  - Oncologic complication [Fatal]
  - Inappropriate schedule of drug administration [Unknown]
  - Diabetic complication [Fatal]

NARRATIVE: CASE EVENT DATE: 2010
